FAERS Safety Report 9759713 (Version 1)
Quarter: 2013Q4

REPORT INFORMATION
  Report Type: Spontaneous
  Country: US (occurrence: US)
  Receive Date: 20131216
  Receipt Date: 20131216
  Transmission Date: 20140711
  Serious: No
  Sender: FDA-Public Use
  Company Number: US-GILEAD-2010-0029037

PATIENT
  Age: 64 Year
  Sex: Female

DRUGS (11)
  1. LETAIRIS [Suspect]
     Indication: PULMONARY ARTERIAL HYPERTENSION
     Route: 048
     Dates: start: 20100408, end: 20100412
  2. SONATA [Concomitant]
  3. POTASSIUM CHLORIDE [Concomitant]
  4. PRILOSEC [Concomitant]
  5. FISH OIL [Concomitant]
  6. MVI [Concomitant]
  7. ASMANEX [Concomitant]
  8. LASIX [Concomitant]
  9. REVATIO [Concomitant]
  10. PROVENTIL [Concomitant]
  11. ALBUTEROL [Concomitant]

REACTIONS (1)
  - Oedema peripheral [Unknown]
